FAERS Safety Report 7057639-7 (Version None)
Quarter: 2010Q4

REPORT INFORMATION
  Report Type: 
  Country: None (occurrence: None)
  Receive Date: 20101022
  Receipt Date: 20101011
  Transmission Date: 20110411
  Serious: Yes (Other)
  Sender: FDA-Public Use
  Company Number: US-MYLANLABS-2010S1018774

PATIENT
  Age: 18 Year
  Sex: Female

DRUGS (2)
  1. CLARAVIS [Suspect]
     Route: 048
     Dates: start: 20100801
  2. AMNESTEEM [Suspect]
     Route: 048
     Dates: end: 20101007

REACTIONS (1)
  - DRUG EXPOSURE DURING PREGNANCY [None]
